FAERS Safety Report 14616898 (Version 1)
Quarter: 2018Q1

REPORT INFORMATION
  Report Type: Spontaneous
  Country: FR (occurrence: FR)
  Receive Date: 20180309
  Receipt Date: 20180309
  Transmission Date: 20180509
  Serious: Yes (Other)
  Sender: FDA-Public Use
  Company Number: FR-009507513-1803FRA002619

PATIENT
  Age: 77 Year
  Sex: Female
  Weight: 66 kg

DRUGS (5)
  1. APREPITANT. [Suspect]
     Active Substance: APREPITANT
     Indication: ANTIEMETIC SUPPORTIVE CARE
     Dosage: 125 MG BEFORE CHEMOTHERAPY AND 80 MG DAY 1 AND DAY 2
     Route: 048
     Dates: start: 20180208
  2. PREDNISONE. [Suspect]
     Active Substance: PREDNISONE
     Indication: ANTIEMETIC SUPPORTIVE CARE
     Dosage: DAY OF CHEMOTHERAPY
     Route: 048
     Dates: start: 20180208
  3. TOMUDEX [Suspect]
     Active Substance: RALTITREXED
     Indication: MALIGNANT PERITONEAL NEOPLASM
     Dosage: 5 MG, UNK
     Route: 040
     Dates: start: 20180208, end: 20180208
  4. ONDANSETRON [Suspect]
     Active Substance: ONDANSETRON
     Indication: ANTIEMETIC SUPPORTIVE CARE
     Dosage: DAY OF CHEMOTEHRAPY
     Route: 048
     Dates: start: 20180208, end: 20180208
  5. OXALIPLATIN. [Suspect]
     Active Substance: OXALIPLATIN
     Indication: MALIGNANT PERITONEAL NEOPLASM
     Dosage: 217 MG, UNK
     Route: 042
     Dates: start: 20180208

REACTIONS (3)
  - Hot flush [Recovered/Resolved]
  - Hypotension [Recovered/Resolved]
  - Feeling abnormal [Recovered/Resolved]

NARRATIVE: CASE EVENT DATE: 20180208
